FAERS Safety Report 14235413 (Version 2)
Quarter: 2018Q1

REPORT INFORMATION
  Report Type: Spontaneous
  Country: AT (occurrence: AT)
  Receive Date: 20171129
  Receipt Date: 20180307
  Transmission Date: 20180508
  Serious: Yes (Death, Other)
  Sender: FDA-Public Use
  Company Number: AT-ASTRAZENECA-2016SE32854

PATIENT
  Age: 568 Month
  Sex: Female

DRUGS (2)
  1. LYNPARZA [Suspect]
     Active Substance: OLAPARIB
     Indication: OVARIAN NEOPLASM
     Route: 048
     Dates: start: 20151201
  2. LYNPARZA [Suspect]
     Active Substance: OLAPARIB
     Indication: OVARIAN NEOPLASM
     Route: 048
     Dates: start: 20160201, end: 201605

REACTIONS (3)
  - Fatigue [Unknown]
  - Malignant neoplasm progression [Fatal]
  - Ascites [Fatal]

NARRATIVE: CASE EVENT DATE: 201605
